FAERS Safety Report 18858011 (Version 1)
Quarter: 2021Q1

REPORT INFORMATION
  Report Type: Spontaneous
  Country: US (occurrence: US)
  Receive Date: 20210208
  Receipt Date: 20210208
  Transmission Date: 20210420
  Serious: Yes (Other)
  Sender: FDA-Public Use
  Company Number: US-BIOVITRUM-2021US1184

PATIENT
  Sex: Male
  Weight: 4 kg

DRUGS (4)
  1. SYNAGIS [Suspect]
     Active Substance: PALIVIZUMAB
     Indication: PREMATURE BABY
  2. EPINEPHRINE HCL [Concomitant]
     Active Substance: EPINEPHRINE
  3. SYNAGIS [Suspect]
     Active Substance: PALIVIZUMAB
     Indication: LOW BIRTH WEIGHT BABY
     Route: 030
  4. SYNAGIS [Suspect]
     Active Substance: PALIVIZUMAB
     Indication: NEONATAL RESPIRATORY FAILURE

REACTIONS (2)
  - Off label use [Unknown]
  - COVID-19 [Unknown]
